FAERS Safety Report 12933039 (Version 1)
Quarter: 2016Q4

REPORT INFORMATION
  Report Type: Spontaneous
  Country: DE (occurrence: DE)
  Receive Date: 20161111
  Receipt Date: 20161111
  Transmission Date: 20170207
  Serious: Yes (Congenital Anomaly, Other)
  Sender: FDA-Public Use
  Company Number: DE-TEVA-708428GER

PATIENT
  Age: 1 Day
  Sex: Female
  Weight: .76 kg

DRUGS (8)
  1. METHYLDOPA. [Suspect]
     Active Substance: METHYLDOPA
     Indication: HYPERTENSION
     Dosage: 1000 MG/D
     Route: 064
     Dates: start: 20151109, end: 20160514
  2. METOPROLOL. [Concomitant]
     Active Substance: METOPROLOL
     Indication: HYPERTENSION
     Dosage: 142.5 MG/D
     Route: 064
     Dates: start: 20151109, end: 20160514
  3. FOLSAEURE [Concomitant]
     Active Substance: FOLIC ACID
     Indication: PROPHYLAXIS OF NEURAL TUBE DEFECT
     Route: 064
  4. NIFEDIPIN [Concomitant]
     Active Substance: NIFEDIPINE
     Indication: HYPERTENSION
     Dosage: 40 MG/D
     Route: 064
     Dates: start: 20151109, end: 20160511
  5. ASPIRIN. [Concomitant]
     Active Substance: ASPIRIN
     Indication: PROPHYLAXIS
     Dosage: 100 MILLIGRAM DAILY;
     Route: 064
     Dates: start: 20151109, end: 20160509
  6. PREDNISOLON [Suspect]
     Active Substance: PREDNISOLONE
     Indication: PROPHYLAXIS AGAINST TRANSPLANT REJECTION
     Dosage: 15 MILLIGRAM DAILY;
     Route: 064
     Dates: start: 20151109, end: 20160514
  7. VIGANTOLETTEN 1000 [Concomitant]
     Indication: OSTEOPOROSIS PROPHYLAXIS
     Dosage: 1000 IE/D / MOTHER TOOK VIT D AT LEAST BEFORE PREGNANCY.
     Route: 064
  8. PROGRAF [Suspect]
     Active Substance: TACROLIMUS\TACROLIMUS ANHYDROUS
     Indication: PROPHYLAXIS AGAINST TRANSPLANT REJECTION
     Dosage: DOSAGE NOT EXACTLY KNOWN: SOMETHING BETWEEN 2 AND 9 MG DAILY.
     Route: 064
     Dates: start: 20151109, end: 20160514

REACTIONS (5)
  - Foetal exposure during pregnancy [Unknown]
  - Neonatal respiratory distress syndrome [Recovered/Resolved]
  - Premature baby [Unknown]
  - Atrial septal defect [Unknown]
  - Hyperglycaemia [Recovered/Resolved]

NARRATIVE: CASE EVENT DATE: 20160514
